FAERS Safety Report 4808506-8 (Version None)
Quarter: 2005Q4

REPORT INFORMATION
  Report Type: 
  Country: None (occurrence: None)
  Receive Date: 20051025
  Receipt Date: 20051013
  Transmission Date: 20060501
  Serious: Yes (Hospitalization)
  Sender: FDA-Public Use
  Company Number: 2005CG01720

PATIENT
  Sex: Male

DRUGS (1)
  1. DIPRIVAN [Suspect]
     Route: 042
     Dates: start: 20050101, end: 20050101

REACTIONS (2)
  - BLOOD CREATINE PHOSPHOKINASE INCREASED [None]
  - METABOLIC ACIDOSIS [None]
